FAERS Safety Report 9015772 (Version 5)
Quarter: 2013Q1

REPORT INFORMATION
  Report Type: Report from Study
  Country: BR (occurrence: BR)
  Receive Date: 20130116
  Receipt Date: 20130321
  Transmission Date: 20140127
  Serious: Yes (Death)
  Sender: FDA-Public Use
  Company Number: BR-ROCHE-1177900

PATIENT
  Age: 54 Year
  Sex: Female
  Weight: 133 kg

DRUGS (12)
  1. TOCILIZUMAB [Suspect]
     Indication: RHEUMATOID ARTHRITIS
     Dosage: LAST DOSE PRIOR TO SAE : 25/DEC/2012. LAST DOSE: 162 MG
     Route: 058
     Dates: start: 20120417
  2. BLINDED TOCILIZUMAB [Suspect]
     Indication: RHEUMATOID ARTHRITIS
     Dosage: LAST DOSE PRIOR TO SAE : 05 APR 2012
     Route: 058
     Dates: start: 20111031, end: 20120403
  3. CAPTOPRIL [Concomitant]
     Route: 048
     Dates: start: 2004
  4. ATENOLOL [Concomitant]
     Route: 048
     Dates: start: 2004
  5. HYDROCHLOROTHIAZIDE [Concomitant]
     Route: 048
     Dates: start: 2004
  6. OMEPRAZOLE [Concomitant]
     Route: 048
     Dates: start: 200910
  7. AMITRIPTYLINE [Concomitant]
     Route: 048
     Dates: start: 2009
  8. FLUOXETINE [Concomitant]
     Route: 048
     Dates: start: 2009
  9. METHOTREXATE [Concomitant]
     Indication: RHEUMATOID ARTHRITIS
     Route: 048
     Dates: start: 200310
  10. FOLIC ACID [Concomitant]
     Indication: RHEUMATOID ARTHRITIS
     Route: 048
     Dates: start: 200310
  11. PREDNISONE [Concomitant]
     Indication: RHEUMATOID ARTHRITIS
     Route: 048
     Dates: start: 20120425
  12. SIMVASTATIN [Concomitant]
     Route: 048
     Dates: start: 20120612

REACTIONS (1)
  - Acute myocardial infarction [Fatal]
